FAERS Safety Report 8106991-X (Version None)
Quarter: 2012Q1

REPORT INFORMATION
  Report Type: 
  Country: None (occurrence: None)
  Receive Date: 20120202
  Receipt Date: 20120202
  Transmission Date: 20120608
  Serious: Yes (Hospitalization)
  Sender: FDA-Public Use
  Company Number: None

PATIENT
  Age: 70 Year
  Sex: Female
  Weight: 63.502 kg

DRUGS (1)
  1. FOSAMAX [Suspect]
     Indication: OSTEOPENIA
     Dosage: ONE TABLET
     Route: 048
     Dates: start: 20010201, end: 20070201

REACTIONS (2)
  - FEMUR FRACTURE [None]
  - FALL [None]
